FAERS Safety Report 22795790 (Version 3)
Quarter: 2024Q3

REPORT INFORMATION
  Report Type: Spontaneous
  Country: US (occurrence: US)
  Receive Date: 20230807
  Receipt Date: 20240910
  Transmission Date: 20241016
  Serious: Yes (Other)
  Sender: VERTEX
  Company Number: US-VERTEX PHARMACEUTICALS-2023-011745

PATIENT

DRUGS (1)
  1. TRIKAFTA [Suspect]
     Active Substance: ELEXACAFTOR\IVACAFTOR\TEZACAFTOR
     Indication: Cystic fibrosis
     Dosage: UNKNOWN DOSAGE REGIMEN
     Route: 048

REACTIONS (34)
  - Weight increased [Unknown]
  - Suicidal ideation [Unknown]
  - Aphasia [Unknown]
  - Brain fog [Unknown]
  - Memory impairment [Unknown]
  - Disturbance in attention [Unknown]
  - Anxiety [Unknown]
  - Panic disorder [Unknown]
  - Hypomania [Unknown]
  - Mania [Unknown]
  - Sleep disorder [Unknown]
  - Abnormal dreams [Unknown]
  - Nightmare [Unknown]
  - Fatigue [Unknown]
  - Asthenia [Unknown]
  - Apathy [Unknown]
  - Body dysmorphic disorder [Unknown]
  - Bulimia nervosa [Unknown]
  - Post-traumatic stress disorder [Unknown]
  - Stress [Unknown]
  - Libido decreased [Unknown]
  - Fear [Unknown]
  - Thinking abnormal [Unknown]
  - Paranoia [Unknown]
  - Agitation [Unknown]
  - Insomnia [Unknown]
  - Cognitive disorder [Unknown]
  - Mood swings [Unknown]
  - Irritability [Unknown]
  - Distractibility [Recovering/Resolving]
  - Depression [Unknown]
  - Depressed mood [Unknown]
  - Cough [Unknown]
  - Lung disorder [Unknown]
